FAERS Safety Report 21484467 (Version 1)
Quarter: 2022Q4

REPORT INFORMATION
  Report Type: Spontaneous
  Country: US (occurrence: US)
  Receive Date: 20221020
  Receipt Date: 20221020
  Transmission Date: 20230113
  Serious: Yes (Other)
  Sender: FDA-Public Use
  Company Number: US-SA-2022SA427208

PATIENT
  Age: 12 Year
  Sex: Male

DRUGS (1)
  1. ELOCTATE [Suspect]
     Active Substance: EFMOROCTOCOG ALFA
     Dosage: 3000 U

REACTIONS (2)
  - Haemorrhage [Unknown]
  - Oral surgery [Unknown]

NARRATIVE: CASE EVENT DATE: 20221007
